FAERS Safety Report 7895423-2 (Version None)
Quarter: 2011Q4

REPORT INFORMATION
  Report Type: 
  Country: None (occurrence: None)
  Receive Date: 20111102
  Receipt Date: 20111019
  Transmission Date: 20120403
  Serious: Yes (Other)
  Sender: FDA-Public Use
  Company Number: 2011-01202

PATIENT
  Age: 64 Year
  Sex: Male
  Weight: 74.8435 kg

DRUGS (2)
  1. HYDROCHLOROTHIAZIDE [Concomitant]
  2. QUINAPRIL [Suspect]
     Indication: HYPERTENSION
     Dosage: 20 MG (20 MG, 1 IN 1 D) PER ORAL
     Route: 048
     Dates: start: 20110401, end: 20110901

REACTIONS (7)
  - WHITE BLOOD CELL COUNT DECREASED [None]
  - DIABETES MELLITUS [None]
  - RED BLOOD CELL COUNT DECREASED [None]
  - CHILLS [None]
  - DYSPNOEA [None]
  - HYPERHIDROSIS [None]
  - FEELING ABNORMAL [None]
